FAERS Safety Report 25078374 (Version 1)
Quarter: 2025Q1

REPORT INFORMATION
  Report Type: Spontaneous
  Country: US (occurrence: None)
  Receive Date: 20250313
  Receipt Date: 20250313
  Transmission Date: 20250408
  Serious: Yes (Death)
  Sender: FDA-CTU
  Company Number: None

PATIENT
  Age: 63 Year
  Sex: Male
  Weight: 90.54 kg

DRUGS (10)
  1. SEROSTIM [Suspect]
     Active Substance: SOMATROPIN
     Indication: HIV infection
     Dosage: FREQUENCY : DAILY;?
     Route: 058
     Dates: start: 20231120, end: 20250302
  2. SEROSTIM [Suspect]
     Active Substance: SOMATROPIN
     Indication: Cachexia
  3. DEPAKOTE [Concomitant]
     Active Substance: DIVALPROEX SODIUM
  4. FLUPHENAZINE 5 MG [Concomitant]
  5. FLUPHENAZINE 5 MG [Concomitant]
  6. NORVIR 1OOMG [Concomitant]
  7. PROPRANOLOL [Concomitant]
     Active Substance: PROPRANOLOL HYDROCHLORIDE
  8. CREON [Concomitant]
     Active Substance: PANCRELIPASE AMYLASE\PANCRELIPASE LIPASE\PANCRELIPASE PROTEASE
  9. ANDROGEL 1.62% [Concomitant]
     Active Substance: TESTOSTERONE
  10. WELLBUTRIN 300MG [Concomitant]

REACTIONS (1)
  - Death [None]

NARRATIVE: CASE EVENT DATE: 20250302
